FAERS Safety Report 17800913 (Version 2)
Quarter: 2020Q2

REPORT INFORMATION
  Report Type: Spontaneous
  Country: US (occurrence: US)
  Receive Date: 20200519
  Receipt Date: 20200617
  Transmission Date: 20200714
  Serious: Yes (Other)
  Sender: FDA-Public Use
  Company Number: US-HORMOSAN PHARMA GMBH-2020-02166

PATIENT
  Age: 24 Year
  Sex: Male
  Weight: 64 kg

DRUGS (2)
  1. QUETIAPINE TABLETS USP, 100 MG [Suspect]
     Active Substance: QUETIAPINE
     Indication: BORDERLINE PERSONALITY DISORDER
     Dosage: 100 MILLIGRAM, QD, ONCE DAILY IN THE EVENING
     Route: 048
     Dates: start: 201805, end: 201807
  2. QUETIAPINE TABLETS USP, 300 MG [Suspect]
     Active Substance: QUETIAPINE
     Indication: BORDERLINE PERSONALITY DISORDER
     Dosage: 300 MILLIGRAM, QD, ONCE DAILY IN THE MORNING
     Route: 048
     Dates: start: 201805, end: 201807

REACTIONS (7)
  - Abnormal dreams [Recovered/Resolved]
  - Somnolence [Recovered/Resolved]
  - Thinking abnormal [Recovered/Resolved]
  - Hypertensive crisis [Recovered/Resolved]
  - Communication disorder [Recovered/Resolved]
  - Mania [Recovered/Resolved]
  - Seizure [Recovered/Resolved]

NARRATIVE: CASE EVENT DATE: 201805
